FAERS Safety Report 13272576 (Version 3)
Quarter: 2017Q1

REPORT INFORMATION
  Report Type: Spontaneous
  Country: US (occurrence: US)
  Receive Date: 20170227
  Receipt Date: 20170329
  Transmission Date: 20170428
  Serious: No
  Sender: FDA-Public Use
  Company Number: US-PFIZER INC-2017075829

PATIENT
  Age: 68 Year
  Sex: Female
  Weight: 102.4 kg

DRUGS (1)
  1. IBRANCE [Suspect]
     Active Substance: PALBOCICLIB
     Indication: BREAST CANCER FEMALE
     Dosage: 125 MG, CYCLIC (1 CAPSULE DAILY FOR 21 DAYS IN A ROW THEN 1 WEEK OFF; DAILY FOR 3 WEEKS)
     Route: 048

REACTIONS (1)
  - Neoplasm progression [Unknown]
